FAERS Safety Report 9928453 (Version 1)
Quarter: 2014Q1

REPORT INFORMATION
  Report Type: Spontaneous
  Country: US (occurrence: None)
  Receive Date: 20140226
  Receipt Date: 20140226
  Transmission Date: 20141002
  Serious: Yes (Other)
  Sender: FDA-Public Use
  Company Number: None

PATIENT
  Age: 57 Year
  Sex: Male
  Weight: 92.08 kg

DRUGS (1)
  1. LEVOFLOXACIN [Suspect]
     Indication: ACUTE SINUSITIS
     Route: 048
     Dates: start: 20140204, end: 20140213

REACTIONS (7)
  - Jaundice [None]
  - Pyrexia [None]
  - Nausea [None]
  - Decreased appetite [None]
  - Abdominal discomfort [None]
  - Pain in extremity [None]
  - Chromaturia [None]
